FAERS Safety Report 6438277-3 (Version None)
Quarter: 2009Q4

REPORT INFORMATION
  Report Type: 
  Country: None (occurrence: None)
  Receive Date: 20091112
  Receipt Date: 20091029
  Transmission Date: 20100525
  Serious: Yes (Other)
  Sender: FDA-Public Use
  Company Number: PHEH2009US10766

PATIENT
  Sex: Female

DRUGS (1)
  1. HYPOTEARS (NVO) [Suspect]
     Indication: DRY EYE
     Dosage: UNK

REACTIONS (4)
  - BLINDNESS TRANSIENT [None]
  - CATARACT [None]
  - CATARACT OPERATION COMPLICATION [None]
  - LASER THERAPY [None]
